FAERS Safety Report 8318849-1 (Version None)
Quarter: 2012Q2

REPORT INFORMATION
  Report Type: 
  Country: None (occurrence: None)
  Receive Date: 20120426
  Receipt Date: 20120426
  Transmission Date: 20120825
  Serious: Yes (Other)
  Sender: FDA-Public Use
  Company Number: None

PATIENT
  Age: 5 Year
  Sex: Male
  Weight: 24.0406 kg

DRUGS (1)
  1. MULTI-VITAMINS [Suspect]
     Indication: VITAMIN SUPPLEMENTATION
     Dosage: 1 TABLET ONCE PER DAY ORAL
     Route: 048
     Dates: start: 20120404

REACTIONS (3)
  - NAUSEA [None]
  - ABDOMINAL PAIN UPPER [None]
  - PRODUCT TASTE ABNORMAL [None]
